FAERS Safety Report 5563556-1 (Version None)
Quarter: 2007Q4

REPORT INFORMATION
  Report Type: 
  Country: None (occurrence: None)
  Receive Date: 20071214
  Receipt Date: 20071214
  Transmission Date: 20080405
  Serious: Yes (Other)
  Sender: FDA-Public Use
  Company Number: None

PATIENT
  Age: 55 Year
  Sex: Male

DRUGS (1)
  1. GABAPENTIN [Suspect]
     Indication: CONVULSION
     Dosage: 600MG 1 TID PO
     Route: 048
     Dates: start: 20060818, end: 20070701

REACTIONS (2)
  - DYSGEUSIA [None]
  - NAUSEA [None]
